FAERS Safety Report 21678292 (Version 1)
Quarter: 2022Q4

REPORT INFORMATION
  Report Type: Spontaneous
  Country: FR (occurrence: FR)
  Receive Date: 20221203
  Receipt Date: 20221203
  Transmission Date: 20230112
  Serious: Yes (Hospitalization)
  Sender: FDA-Public Use
  Company Number: None

PATIENT
  Age: 47 Year
  Sex: Male
  Weight: 62 kg

DRUGS (6)
  1. PEMETREXED [Suspect]
     Active Substance: PEMETREXED
     Indication: Adenocarcinoma
     Dosage: UNIT DOSE :  900 MG  , FREQUENCY TIME : 1 TOTAL  , DURATION : 1 DAY
     Dates: start: 20221017, end: 20221017
  2. CARBOPLATIN [Suspect]
     Active Substance: CARBOPLATIN
     Indication: Adenocarcinoma
     Dosage: UNIT DOSE :  640 MG   , FREQUENCY TIME : 1 TOTAL    , DURATION : 1 DAY
     Dates: start: 20221017, end: 20221017
  3. AUGMENTIN [Suspect]
     Active Substance: AMOXICILLIN\CLAVULANATE POTASSIUM
     Indication: Bronchial obstruction
     Dosage: 1 G/200 MG ADULTS, POWDER FOR SOLUTION FOR INJECTION (I.V.) , UNIT DOSE : 3.6 GRAM  , FREQUENCY TIME
     Dates: start: 20221022, end: 20221024
  4. KEYTRUDA [Suspect]
     Active Substance: PEMBROLIZUMAB
     Indication: Adenocarcinoma
     Dosage: DURATION : 1 DAY
     Dates: start: 20221017, end: 20221017
  5. ENOXAPARIN SODIUM [Concomitant]
     Active Substance: ENOXAPARIN SODIUM
     Indication: Product used for unknown indication
     Dosage: 4,000 IU (40 MG) IN 0.4 ML
  6. POTASSIUM CHLORIDE [Concomitant]
     Active Substance: POTASSIUM CHLORIDE
     Indication: Product used for unknown indication

REACTIONS (1)
  - Erythema [Recovered/Resolved]

NARRATIVE: CASE EVENT DATE: 20221024
